FAERS Safety Report 5088995-7 (Version None)
Quarter: 2006Q3

REPORT INFORMATION
  Report Type: 
  Country: None (occurrence: None)
  Receive Date: 20060825
  Receipt Date: 20060822
  Transmission Date: 20061208
  Serious: Yes (Hospitalization, Disabling)
  Sender: FDA-Public Use
  Company Number: PHRM2006FR02370

PATIENT
  Sex: Male
  Weight: 75 kg

DRUGS (3)
  1. ZOMETA [Suspect]
     Indication: METASTASES TO BONE
     Dosage: 4 MG, QMO
     Route: 042
     Dates: end: 20050901
  2. DECTANCYL [Concomitant]
  3. THALIDOMIDE [Concomitant]

REACTIONS (3)
  - LOCALISED INFECTION [None]
  - OSTEONECROSIS [None]
  - SURGERY [None]
